FAERS Safety Report 5315319-X (Version None)
Quarter: 2007Q2

REPORT INFORMATION
  Report Type: 
  Country: None (occurrence: None)
  Receive Date: 20070427
  Receipt Date: 20070418
  Transmission Date: 20071010
  Serious: No
  Sender: FDA-Public Use
  Company Number: 232883K07USA

PATIENT
  Age: 61 Year
  Sex: Female

DRUGS (5)
  1. REBIF [Suspect]
     Indication: MULTIPLE SCLEROSIS
     Dosage: 44 MCG, 3 IN1 WEEKS, NOT REPORTED
     Dates: start: 20051207, end: 20060601
  2. ZOLOFT [Concomitant]
  3. TRAZODONE HCL [Concomitant]
  4. DARVOCET-N (PROPACET) [Concomitant]
  5. VALIUM [Concomitant]

REACTIONS (5)
  - LIVER FUNCTION TEST ABNORMAL [None]
  - NAUSEA [None]
  - PYREXIA [None]
  - SWELLING [None]
  - VOMITING [None]
